FAERS Safety Report 8915972 (Version 1)
Quarter: 2012Q4

REPORT INFORMATION
  Report Type: 
  Country: US (occurrence: US)
  Receive Date: 20121119
  Receipt Date: 20121119
  Transmission Date: 20130627
  Serious: Yes (Disabling)
  Sender: FDA-Public Use
  Company Number: US-GLAXOSMITHKLINE-A0998822A

PATIENT
  Age: 65 Year
  Sex: Female

DRUGS (8)
  1. PROMACTA [Suspect]
     Indication: IDIOPATHIC THROMBOCYTOPENIC PURPURA
     Dosage: 12.5MG Per day
     Route: 048
     Dates: start: 20120702
  2. CLARITIN [Concomitant]
  3. ESTROGEN PATCH [Concomitant]
  4. INSULIN LANTUS [Concomitant]
  5. MULTI VITAMINS [Concomitant]
  6. SYNTHROID [Concomitant]
  7. VICTOZA [Concomitant]
  8. VITAMIN D [Concomitant]

REACTIONS (1)
  - Nodule [Not Recovered/Not Resolved]
